FAERS Safety Report 25739683 (Version 1)
Quarter: 2025Q3

REPORT INFORMATION
  Report Type: Spontaneous
  Country: EU (occurrence: EU)
  Receive Date: 20250829
  Receipt Date: 20250829
  Transmission Date: 20251020
  Serious: Yes (Other)
  Sender: Medicap Laboratories
  Company Number: EU-Medicap-000024

PATIENT
  Age: 45 Year
  Sex: Female

DRUGS (2)
  1. DULOXETINE [Suspect]
     Active Substance: DULOXETINE
     Indication: Major depression
     Route: 065
  2. VENLAFAXINE [Suspect]
     Active Substance: VENLAFAXINE HYDROCHLORIDE
     Indication: Major depression
     Route: 065

REACTIONS (5)
  - Toxicity to various agents [Unknown]
  - Colitis microscopic [Unknown]
  - Collagenous gastritis [Unknown]
  - Microscopic enteritis [Unknown]
  - Lymphocytic oesophagitis [Unknown]
